FAERS Safety Report 21741096 (Version 1)
Quarter: 2022Q4

REPORT INFORMATION
  Report Type: Spontaneous
  Country: LT (occurrence: LT)
  Receive Date: 20221216
  Receipt Date: 20221216
  Transmission Date: 20230112
  Serious: Yes (Other)
  Sender: FDA-Public Use
  Company Number: LT-BAYER-2022P027342

PATIENT
  Age: 63 Year
  Sex: Female

DRUGS (4)
  1. STIVARGA [Suspect]
     Active Substance: REGORAFENIB
     Indication: Colon cancer
     Dosage: 160 MG, QD, DAYS1-21 EVERY 4 WEEKS
     Route: 048
     Dates: start: 20220721
  2. STIVARGA [Suspect]
     Active Substance: REGORAFENIB
     Indication: Colon cancer
     Dosage: 160 MG, QD, DAYS1-21 EVERY 4 WEEKS
     Route: 048
  3. STIVARGA [Suspect]
     Active Substance: REGORAFENIB
     Indication: Colon cancer
     Dosage: 160 MG, QD, DAYS1-21 EVERY 4 WEEKS
     Route: 048
  4. STIVARGA [Suspect]
     Active Substance: REGORAFENIB
     Indication: Colon cancer
     Dosage: 160 MG, QD, DAYS1-21 EVERY 4 WEEKS
     Route: 048
     Dates: end: 20221102

REACTIONS (19)
  - Aspartate aminotransferase increased [None]
  - Blood alkaline phosphatase increased [None]
  - Metastases to liver [Not Recovered/Not Resolved]
  - Carcinoembryonic antigen increased [None]
  - C-reactive protein increased [None]
  - Gamma-glutamyltransferase increased [None]
  - Asthenia [None]
  - Hypoaesthesia [None]
  - Oropharyngeal pain [None]
  - Asthenia [None]
  - Diarrhoea [None]
  - Nausea [None]
  - Decreased appetite [None]
  - Pre-existing condition improved [None]
  - Red cell distribution width increased [None]
  - Plateletcrit decreased [None]
  - Mean platelet volume decreased [None]
  - Alanine aminotransferase increased [None]
  - Blood chloride decreased [None]

NARRATIVE: CASE EVENT DATE: 20220818
